FAERS Safety Report 12926501 (Version 1)
Quarter: 2016Q4

REPORT INFORMATION
  Report Type: Spontaneous
  Country: CH (occurrence: CH)
  Receive Date: 20161109
  Receipt Date: 20161109
  Transmission Date: 20170207
  Serious: Yes (Other)
  Sender: FDA-Public Use
  Company Number: CH-TEVA-708615ISR

PATIENT
  Sex: Female

DRUGS (2)
  1. DAFALGAN [Suspect]
     Active Substance: ACETAMINOPHEN
     Route: 048
     Dates: start: 20161008
  2. TRAMADOL MEPHA [Suspect]
     Active Substance: TRAMADOL HYDROCHLORIDE
     Dosage: 50 MILLIGRAM DAILY;
     Route: 048
     Dates: start: 20161008

REACTIONS (2)
  - Circulatory collapse [Unknown]
  - Vomiting [Unknown]

NARRATIVE: CASE EVENT DATE: 20161008
